FAERS Safety Report 5232645-3 (Version None)
Quarter: 2007Q1

REPORT INFORMATION
  Report Type: 
  Country: None (occurrence: None)
  Receive Date: 20070207
  Receipt Date: 20070119
  Transmission Date: 20070707
  Serious: Yes (Hospitalization)
  Sender: FDA-Public Use
  Company Number: FR-BRISTOL-MYERS SQUIBB COMPANY-13656079

PATIENT
  Age: 74 Year
  Sex: Female

DRUGS (2)
  1. VASTEN [Suspect]
     Indication: HYPERCHOLESTEROLAEMIA
     Route: 048
     Dates: end: 20061026
  2. ALLOPURINOL SODIUM [Suspect]
     Route: 048
     Dates: end: 20061026

REACTIONS (1)
  - PANCYTOPENIA [None]
